APPROVED DRUG PRODUCT: LIDOCAINE AND PRILOCAINE
Active Ingredient: LIDOCAINE; PRILOCAINE
Strength: 2.5%;2.5%
Dosage Form/Route: CREAM;TOPICAL
Application: A213923 | Product #001 | TE Code: AB
Applicant: ALEMBIC PHARMACEUTICALS LTD
Approved: Apr 8, 2022 | RLD: No | RS: No | Type: RX